FAERS Safety Report 11151380 (Version 2)
Quarter: 2015Q2

REPORT INFORMATION
  Report Type: Spontaneous
  Country: IT (occurrence: None)
  Receive Date: 20150528
  Receipt Date: 20150605
  Transmission Date: 20150821
  Serious: Yes (Hospitalization)
  Sender: FDA-Public Use
  Company Number: 2015050044

PATIENT
  Age: 77 Year
  Sex: Male

DRUGS (7)
  1. MIDAZOLAM [Suspect]
     Active Substance: MIDAZOLAM\MIDAZOLAM HYDROCHLORIDE
     Route: 042
     Dates: start: 20150405, end: 20150405
  2. BRONCOVALEAS (SALBUTAMOL) [Concomitant]
  3. FENTANYL. [Suspect]
     Active Substance: FENTANYL
     Route: 042
     Dates: start: 20150405, end: 20150405
  4. SEREUPIN (PAROXETINE HYDROCHLORIDE) TABLET [Concomitant]
     Active Substance: PAROXETINE HYDROCHLORIDE
  5. CLENIL (BECLOMETASONE DIPROPIONATE) [Concomitant]
     Active Substance: BECLOMETHASONE DIPROPIONATE
  6. ATEM (IPRATROPIUM BROMIDE) [Concomitant]
  7. ASPIRIN. [Concomitant]
     Active Substance: ASPIRIN

REACTIONS (4)
  - Back injury [None]
  - Coma [None]
  - Loss of consciousness [None]
  - Dyspnoea [None]

NARRATIVE: CASE EVENT DATE: 20150405
